FAERS Safety Report 25549969 (Version 1)
Quarter: 2025Q3

REPORT INFORMATION
  Report Type: Spontaneous
  Country: US (occurrence: US)
  Receive Date: 20250714
  Receipt Date: 20250714
  Transmission Date: 20251021
  Serious: No
  Sender: NOVO NORDISK
  Company Number: US-NOVOPROD-1355733

PATIENT
  Sex: Male

DRUGS (2)
  1. SEMAGLUTIDE [Suspect]
     Active Substance: SEMAGLUTIDE
     Indication: Product used for unknown indication
     Route: 058
     Dates: end: 202412
  2. METHYLCOBALAMIN [Suspect]
     Active Substance: METHYLCOBALAMIN
     Indication: Product used for unknown indication

REACTIONS (5)
  - Feeling jittery [Unknown]
  - Tension [Unknown]
  - Decreased appetite [Unknown]
  - Abdominal distension [Unknown]
  - Suspected counterfeit product [Unknown]
